FAERS Safety Report 11589252 (Version 2)
Quarter: 2015Q4

REPORT INFORMATION
  Report Type: Spontaneous
  Country: FR (occurrence: FR)
  Receive Date: 20151002
  Receipt Date: 20151104
  Transmission Date: 20160304
  Serious: Yes (Other)
  Sender: FDA-Public Use
  Company Number: FR-PFIZER INC-2015324351

PATIENT
  Sex: Male
  Weight: 2.8 kg

DRUGS (2)
  1. PHENOBARBITAL. [Suspect]
     Active Substance: PHENOBARBITAL
     Indication: EPILEPSY
     Dosage: 300 MG, DAILY
     Route: 064
  2. EPICLASE [Suspect]
     Active Substance: PHENACEMIDE
     Dosage: 600 MG, UNK
     Route: 064

REACTIONS (14)
  - Coagulation factor X level decreased [None]
  - Purpura neonatal [Recovered/Resolved]
  - Thrombocytopenia neonatal [None]
  - Injection site haemorrhage [Recovered/Resolved]
  - Coagulation factor VII level decreased [None]
  - Vitamin K deficiency [Unknown]
  - Premature baby [None]
  - Maternal drugs affecting foetus [None]
  - Caesarean section [None]
  - Prothrombin level decreased [None]
  - Exposure during pregnancy [Unknown]
  - Mouth haemorrhage [Recovered/Resolved]
  - Scrotal haematocoele [Recovered/Resolved]
  - Anaemia neonatal [None]
